FAERS Safety Report 7421539-0 (Version None)
Quarter: 2011Q2

REPORT INFORMATION
  Report Type: 
  Country: None (occurrence: None)
  Receive Date: 20110418
  Receipt Date: 20110415
  Transmission Date: 20111010
  Serious: Yes (Other)
  Sender: FDA-Public Use
  Company Number: US-PFIZER INC-2011083585

PATIENT
  Sex: Male
  Weight: 95.24 kg

DRUGS (2)
  1. PLAVIX [Concomitant]
     Dosage: UNK
  2. LIPITOR [Suspect]
     Indication: MYOCARDIAL INFARCTION
     Dosage: 80 MG, DAILY
     Route: 048
     Dates: start: 20090919

REACTIONS (4)
  - BLOOD PRESSURE ABNORMAL [None]
  - FATIGUE [None]
  - AMNESIA [None]
  - FEELING ABNORMAL [None]
